FAERS Safety Report 8814198 (Version 1)
Quarter: 2012Q4

REPORT INFORMATION
  Report Type: 
  Country: US (occurrence: US)
  Receive Date: 20120928
  Receipt Date: 20120928
  Transmission Date: 20130627
  Serious: Yes (Other)
  Sender: FDA-Public Use
  Company Number: US-BAYER-2012-099384

PATIENT
  Age: 19 Year
  Sex: Female

DRUGS (10)
  1. YASMIN [Suspect]
  2. KEFLEX [Concomitant]
  3. IBUPROFEN [Concomitant]
  4. PERCOCET [Concomitant]
  5. CIPRO [Concomitant]
  6. ULTRAM [Concomitant]
  7. LAXATIVE [Concomitant]
  8. MIDOL [ACETYLSALICYLIC ACID,CAFFEINE,CINNAMEDRINE,PHENACETIN] [Concomitant]
  9. HYDROCODONE W/APAP [Concomitant]
     Dosage: UNK
     Dates: start: 20071105
  10. CYCLOBENZAPRINE [Concomitant]
     Dosage: UNK
     Dates: start: 20071105

REACTIONS (1)
  - Cholelithiasis [None]
